FAERS Safety Report 4508344-X (Version None)
Quarter: 2004Q4

REPORT INFORMATION
  Report Type: 
  Country: None (occurrence: None)
  Receive Date: 20041123
  Receipt Date: 20040113
  Transmission Date: 20050328
  Serious: No
  Sender: FDA-Public Use
  Company Number: US-GLAXOSMITHKLINE-A0492890A

PATIENT
  Sex: Female

DRUGS (4)
  1. WELLBUTRIN [Suspect]
     Indication: ILL-DEFINED DISORDER
     Dosage: 150MG TWICE PER DAY
     Route: 048
  2. METHOCARBAMOL [Concomitant]
  3. GUAIFENESIN [Concomitant]
  4. UNKNOWN SUPPLEMENT [Concomitant]

REACTIONS (1)
  - LYMPHADENOPATHY [None]
